FAERS Safety Report 7191894-8 (Version None)
Quarter: 2010Q4

REPORT INFORMATION
  Report Type: 
  Country: None (occurrence: None)
  Receive Date: 20101223
  Receipt Date: 20101213
  Transmission Date: 20110411
  Serious: Yes (Other)
  Sender: FDA-Public Use
  Company Number: US-ROCHE-748940

PATIENT
  Sex: Female

DRUGS (1)
  1. AVASTIN [Suspect]
     Indication: MACULAR DEGENERATION
     Dosage: 3 INJECTIONS IN 2010.
     Route: 065
     Dates: start: 20100201, end: 20100401

REACTIONS (1)
  - VISUAL ACUITY REDUCED [None]
